FAERS Safety Report 10168904 (Version 1)
Quarter: 2014Q2

REPORT INFORMATION
  Report Type: Spontaneous
  Country: US (occurrence: US)
  Receive Date: 20140513
  Receipt Date: 20140513
  Transmission Date: 20141212
  Serious: Yes (Other)
  Sender: FDA-Public Use
  Company Number: US-ROCHE-1400020

PATIENT
  Sex: Female

DRUGS (12)
  1. XOLAIR [Suspect]
     Indication: ASTHMA
     Dosage: FIRST SHIPMENT DATE
     Route: 058
     Dates: start: 20140416
  2. METFORMIN [Concomitant]
     Route: 065
  3. SINGULAIR [Concomitant]
     Route: 065
  4. ASPIRIN [Concomitant]
     Route: 065
  5. HYDROCHLOROTHIAZIDE [Concomitant]
     Route: 065
  6. ADVAIR DISKUS [Concomitant]
     Dosage: PUFFS
     Route: 065
  7. FEXOFENADINE [Concomitant]
     Dosage: AT BEDTIME
     Route: 065
  8. VERAPAMIL [Concomitant]
     Dosage: AT BEDTIME
     Route: 065
  9. OMEGA 3 [Concomitant]
     Route: 065
  10. PROAIR (UNITED STATES) [Concomitant]
     Dosage: 2 PUFFS AS NEEDED
     Route: 055
  11. VITAMIN D3 [Concomitant]
     Dosage: 400 UNITS
     Route: 065
  12. BENICAR [Concomitant]
     Route: 065

REACTIONS (2)
  - Pruritus [Recovered/Resolved]
  - Throat tightness [Recovered/Resolved]
